FAERS Safety Report 25388187 (Version 1)
Quarter: 2025Q2

REPORT INFORMATION
  Report Type: Spontaneous
  Country: HR (occurrence: HR)
  Receive Date: 20250603
  Receipt Date: 20250603
  Transmission Date: 20250716
  Serious: Yes (Hospitalization, Other)
  Sender: CELLTRION
  Company Number: HR-SAMSUNG BIOEPIS-SB-2024-36323

PATIENT

DRUGS (1)
  1. ADALIMUMAB [Suspect]
     Active Substance: ADALIMUMAB
     Indication: Crohn^s disease

REACTIONS (2)
  - Pneumonia [Not Recovered/Not Resolved]
  - Arthritis enteropathic [Unknown]

NARRATIVE: CASE EVENT DATE: 20220101
